FAERS Safety Report 6960726-2 (Version None)
Quarter: 2010Q3

REPORT INFORMATION
  Report Type: 
  Country: None (occurrence: None)
  Receive Date: 20100823
  Receipt Date: 20100707
  Transmission Date: 20110219
  Serious: No
  Sender: FDA-Public Use
  Company Number: 015219

PATIENT
  Sex: Female
  Weight: 77.1 kg

DRUGS (6)
  1. CIMZIA [Suspect]
     Indication: CROHN'S DISEASE
     Dosage: (400 MG 1X/MONTH SUBCUTANEOUS)
     Route: 058
     Dates: start: 20100425
  2. PRILOSEC [Concomitant]
  3. MULTIVITAMIN /01229101/ [Concomitant]
  4. ACTONEL [Concomitant]
  5. CARVEDILOL [Concomitant]
  6. LISINOPRIL AND HYDROCHLOROTHIAZIDE [Concomitant]

REACTIONS (1)
  - HYPERSENSITIVITY [None]
